FAERS Safety Report 5523223-7 (Version None)
Quarter: 2007Q4

REPORT INFORMATION
  Report Type: 
  Country: None (occurrence: None)
  Receive Date: 20071121
  Receipt Date: 20071116
  Transmission Date: 20080405
  Serious: Yes (Life-Threatening, Other)
  Sender: FDA-Public Use
  Company Number: GB-BRISTOL-MYERS SQUIBB COMPANY-13984794

PATIENT
  Age: 19 Year
  Sex: Female

DRUGS (15)
  1. ETOPOSIDE [Suspect]
     Route: 042
     Dates: start: 20070915
  2. PARACETAMOL [Suspect]
     Route: 042
  3. KETALAR [Suspect]
     Indication: PAIN
     Route: 042
     Dates: start: 20070921, end: 20070928
  4. NORETHINDRONE ACETATE [Suspect]
     Route: 048
  5. ACYCLOVIR [Suspect]
  6. ALLOPURINOL [Suspect]
     Route: 048
  7. CASPOFUNGIN ACETATE [Suspect]
     Route: 042
  8. CHLORPHENIRAMINE TAB [Suspect]
     Route: 042
  9. CYCLOSPORINE [Suspect]
  10. MORPHINE [Suspect]
     Route: 042
  11. OMEPRAZOLE [Suspect]
  12. ONDANSETRON [Suspect]
     Route: 042
  13. TAZOCIN [Suspect]
     Route: 042
  14. VORICONAZOLE [Suspect]
     Route: 048
  15. TPN [Concomitant]

REACTIONS (7)
  - ALANINE AMINOTRANSFERASE INCREASED [None]
  - BLOOD ALKALINE PHOSPHATASE INCREASED [None]
  - BLOOD BILIRUBIN INCREASED [None]
  - DILATATION INTRAHEPATIC DUCT ACQUIRED [None]
  - HEPATOTOXICITY [None]
  - LIVER FUNCTION TEST ABNORMAL [None]
  - VENOOCCLUSIVE DISEASE [None]
